FAERS Safety Report 26002743 (Version 1)
Quarter: 2025Q4

REPORT INFORMATION
  Report Type: Spontaneous
  Country: US (occurrence: US)
  Receive Date: 20251106
  Receipt Date: 20251106
  Transmission Date: 20260117
  Serious: No
  Sender: ABBVIE
  Company Number: US-ABBVIE-6527523

PATIENT
  Age: 37 Year
  Sex: Female

DRUGS (1)
  1. HUMIRA [Suspect]
     Active Substance: ADALIMUMAB
     Indication: Ankylosing spondylitis
     Dosage: FORM STRENGTH: 40 MILLIGRAM
     Route: 058

REACTIONS (4)
  - Plantar fascial fibromatosis [Unknown]
  - Drug ineffective [Not Recovered/Not Resolved]
  - Injection site necrosis [Unknown]
  - Device issue [Not Recovered/Not Resolved]

NARRATIVE: CASE EVENT DATE: 20251026
